FAERS Safety Report 14632145 (Version 1)
Quarter: 2018Q1

REPORT INFORMATION
  Report Type: Spontaneous
  Country: DE (occurrence: DE)
  Receive Date: 20180313
  Receipt Date: 20180313
  Transmission Date: 20180509
  Serious: Yes (Other)
  Sender: FDA-Public Use
  Company Number: DE-PFIZER INC-2018060393

PATIENT
  Sex: Male
  Weight: 58 kg

DRUGS (1)
  1. LANTAREL [Suspect]
     Active Substance: METHOTREXATE SODIUM
     Indication: PSORIASIS
     Dosage: UNK, WEEKLY
     Route: 058
     Dates: start: 20171028, end: 20171201

REACTIONS (3)
  - Blood count abnormal [Recovering/Resolving]
  - Eosinophil count increased [Recovering/Resolving]
  - Light chain analysis increased [Recovering/Resolving]

NARRATIVE: CASE EVENT DATE: 20171130
